FAERS Safety Report 4299704-3 (Version None)
Quarter: 2004Q1

REPORT INFORMATION
  Report Type: 
  Country: None (occurrence: None)
  Receive Date: 20040219
  Receipt Date: 20040216
  Transmission Date: 20041129
  Serious: Yes (Death)
  Sender: FDA-Public Use
  Company Number: TW-BRISTOL-MYERS SQUIBB COMPANY-12508016

PATIENT
  Age: 77 Year
  Sex: Male

DRUGS (3)
  1. TAXOL [Suspect]
     Indication: GASTRIC CANCER
     Route: 042
     Dates: start: 20040202, end: 20040202
  2. UFT [Suspect]
     Indication: GASTRIC CANCER
     Route: 048
     Dates: start: 20040202, end: 20040202
  3. LEUCOVORIN CALCIUM [Suspect]
     Indication: GASTRIC CANCER
     Route: 048
     Dates: start: 20040202, end: 20040202

REACTIONS (3)
  - DYSPNOEA [None]
  - METABOLIC ACIDOSIS [None]
  - SEPTIC SHOCK [None]
